FAERS Safety Report 6130855-4 (Version None)
Quarter: 2009Q1

REPORT INFORMATION
  Report Type: 
  Country: None (occurrence: None)
  Receive Date: 20090325
  Receipt Date: 20090310
  Transmission Date: 20090719
  Serious: Yes (Other)
  Sender: FDA-Public Use
  Company Number: US-PFIZER INC-2006102315

PATIENT
  Sex: Female
  Weight: 54.422 kg

DRUGS (10)
  1. PROVERA [Suspect]
     Indication: HORMONE REPLACEMENT THERAPY
     Dosage: 2.5 MG, UNK
     Route: 048
     Dates: start: 19940901, end: 19980701
  2. PREMARIN [Suspect]
     Indication: HORMONE REPLACEMENT THERAPY
     Dosage: 0.625 MG, UNK
     Route: 048
     Dates: start: 19940701, end: 20020701
  3. PREMARIN [Suspect]
     Indication: HOT FLUSH
  4. PREMPRO [Suspect]
     Indication: HORMONE REPLACEMENT THERAPY
     Route: 065
     Dates: start: 19940101, end: 20020701
  5. ESTRATAB [Suspect]
     Indication: HORMONE REPLACEMENT THERAPY
     Dosage: 0.625 MG, UNK
     Route: 065
     Dates: start: 19940901, end: 19980701
  6. ESTRATAB [Suspect]
     Indication: HOT FLUSH
  7. LEVOXYL [Concomitant]
     Indication: THYROID DISORDER
     Dosage: UNK
     Dates: start: 19560101
  8. TRAZODONE [Concomitant]
     Indication: INSOMNIA
  9. AMITRIPTYLINE [Concomitant]
     Indication: INSOMNIA
  10. ZOLOFT [Concomitant]

REACTIONS (1)
  - BREAST CANCER [None]
